FAERS Safety Report 11257949 (Version 1)
Quarter: 2015Q3

REPORT INFORMATION
  Report Type: Spontaneous
  Country: US (occurrence: None)
  Receive Date: 20150708
  Receipt Date: 20150708
  Transmission Date: 20151125
  Serious: No
  Sender: FDA-Public Use
  Company Number: None

PATIENT
  Age: 28 Year
  Sex: Male
  Weight: 136.08 kg

DRUGS (11)
  1. RISPERIDONE 2, 3, AND 4 MG^S [Suspect]
     Active Substance: RISPERIDONE
     Indication: TOURETTE^S DISORDER
     Dosage: 1 DOSE PER NIGHT
     Route: 048
     Dates: start: 20101001, end: 20150520
  2. LANSOPRAZOLE. [Concomitant]
     Active Substance: LANSOPRAZOLE
  3. OCCASIONAL TYLENOL [Concomitant]
  4. RISPERIDONE 2, 3, AND 4 MG^S [Suspect]
     Active Substance: RISPERIDONE
     Indication: THINKING ABNORMAL
     Dosage: 1 DOSE PER NIGHT
     Route: 048
     Dates: start: 20101001, end: 20150520
  5. CLONAZEPAM. [Concomitant]
     Active Substance: CLONAZEPAM
  6. RISPERIDONE 2, 3, AND 4 MG^S [Suspect]
     Active Substance: RISPERIDONE
     Indication: ANXIETY
     Dosage: 1 DOSE PER NIGHT
     Route: 048
     Dates: start: 20101001, end: 20150520
  7. RISPERIDONE 2, 3, AND 4 MG^S [Suspect]
     Active Substance: RISPERIDONE
     Indication: OBSESSIVE-COMPULSIVE DISORDER
     Dosage: 1 DOSE PER NIGHT
     Route: 048
     Dates: start: 20101001, end: 20150520
  8. PAROXETINE [Concomitant]
     Active Substance: PAROXETINE\PAROXETINE HYDROCHLORIDE
  9. LISINIPRIL 5MG [Concomitant]
     Active Substance: LISINOPRIL
  10. BABY ASPIRIN [Concomitant]
     Active Substance: ASPIRIN
  11. DAILY VITAMIN [Concomitant]
     Active Substance: VITAMINS

REACTIONS (8)
  - Pruritus [None]
  - Bladder disorder [None]
  - Urinary incontinence [None]
  - Quality of life decreased [None]
  - Product substitution issue [None]
  - Mental status changes [None]
  - Restlessness [None]
  - Akathisia [None]
